FAERS Safety Report 21419665 (Version 2)
Quarter: 2022Q4

REPORT INFORMATION
  Report Type: Report from Study
  Country: US (occurrence: US)
  Receive Date: 20221006
  Receipt Date: 20221206
  Transmission Date: 20230113
  Serious: Yes (Hospitalization)
  Sender: FDA-Public Use
  Company Number: US-ABBVIE-4136964

PATIENT
  Sex: Female
  Weight: 113 kg

DRUGS (5)
  1. ORILISSA [Suspect]
     Active Substance: ELAGOLIX SODIUM
     Indication: Endometriosis
     Dosage: - FORM STRENGTH: 150 MG
     Route: 048
     Dates: start: 2020, end: 202204
  2. ORILISSA [Suspect]
     Active Substance: ELAGOLIX SODIUM
     Indication: Endometriosis
     Dosage: 150 MILLIGRAM
     Route: 048
     Dates: start: 202205, end: 20221126
  3. LISINOPRIL [Concomitant]
     Active Substance: LISINOPRIL
     Indication: Hypertension
  4. NEXIUM [Concomitant]
     Active Substance: ESOMEPRAZOLE MAGNESIUM
     Indication: Gastrooesophageal reflux disease
  5. CITALOPRAM [Concomitant]
     Active Substance: CITALOPRAM HYDROBROMIDE
     Indication: White blood cell count abnormal

REACTIONS (6)
  - Back pain [Recovering/Resolving]
  - Diabetes mellitus [Recovering/Resolving]
  - Pain [Unknown]
  - Abdominal pain lower [Recovering/Resolving]
  - Arthralgia [Recovering/Resolving]
  - Pain in extremity [Recovering/Resolving]

NARRATIVE: CASE EVENT DATE: 20210101
